FAERS Safety Report 6719949-X (Version None)
Quarter: 2010Q2

REPORT INFORMATION
  Report Type: 
  Country: None (occurrence: None)
  Receive Date: 20100511
  Receipt Date: 20100429
  Transmission Date: 20101027
  Serious: Yes (Other)
  Sender: FDA-Public Use
  Company Number: DE-ELI_LILLY_AND_COMPANY-DE201005000397

PATIENT
  Sex: Female

DRUGS (5)
  1. BYETTA [Suspect]
     Indication: TYPE 2 DIABETES MELLITUS
     Dosage: 10 UG, 2/D
     Route: 058
     Dates: start: 20100224
  2. METFORMIN HYDROCHLORIDE [Concomitant]
     Dosage: 1000 MG, 2/D
     Route: 065
  3. XIPAMID [Concomitant]
     Dosage: 40 MG, UNKNOWN
     Route: 065
  4. METO-TABLINEN [Concomitant]
     Dosage: 1/2, UNKNOWN
     Route: 065
  5. VIANI [Concomitant]
     Dosage: 50/250, UNKNOWN
     Route: 065

REACTIONS (2)
  - RENAL FAILURE [None]
  - RENAL FUNCTION TEST ABNORMAL [None]
